FAERS Safety Report 7282071-0 (Version None)
Quarter: 2011Q1

REPORT INFORMATION
  Report Type: 
  Country: None (occurrence: None)
  Receive Date: 20110208
  Receipt Date: 20110201
  Transmission Date: 20110831
  Serious: Yes (Hospitalization, Other)
  Sender: FDA-Public Use
  Company Number: US-RB-014716-10

PATIENT
  Age: 63 Year
  Sex: Male

DRUGS (12)
  1. SUBOXONE [Suspect]
     Indication: DRUG DEPENDENCE
     Route: 060
     Dates: start: 20100801, end: 20101101
  2. CYMBALTA [Concomitant]
     Indication: DEPRESSION
     Route: 065
  3. AMBIEN [Concomitant]
     Indication: INSOMNIA
     Route: 065
  4. DILTIAZEM [Concomitant]
     Indication: HYPERTENSION
     Route: 065
  5. SUBOXONE [Suspect]
     Indication: DRUG DEPENDENCE
     Dosage: TAPERING DOSES AS PRESCRIBED BY PHYSICIAN FROM 8 MG TWICE DAILY DOWN TO 2 MG DAILY
     Route: 060
     Dates: start: 20101101, end: 20110101
  6. SUBOXONE [Suspect]
     Route: 060
     Dates: start: 20110201
  7. LYRICA [Concomitant]
     Indication: BACK PAIN
     Route: 065
  8. DIOVAN [Concomitant]
     Indication: HYPERTENSION
     Route: 065
  9. COUMADIN [Concomitant]
     Indication: ANTICOAGULANT THERAPY
     Dosage: TAKES 2.5 MG FIVE TIMES DAILY AND 5 MG TWICE DAILY
     Route: 065
     Dates: start: 20040101
  10. CLONIDINE [Concomitant]
     Indication: HYPERTENSION
     Route: 065
  11. FLOMAX [Concomitant]
     Indication: URINARY HESITATION
  12. PRAVASTATIN [Concomitant]
     Indication: BLOOD CHOLESTEROL INCREASED
     Route: 065

REACTIONS (8)
  - VOMITING [None]
  - FALL [None]
  - BURSITIS [None]
  - HYPERTENSION [None]
  - TONGUE COATED [None]
  - DIZZINESS [None]
  - NAUSEA [None]
  - MALAISE [None]
